FAERS Safety Report 22154286 (Version 1)
Quarter: 2023Q1

REPORT INFORMATION
  Report Type: Spontaneous
  Country: US (occurrence: US)
  Receive Date: 20230330
  Receipt Date: 20230330
  Transmission Date: 20230418
  Serious: No
  Sender: FDA-Public Use
  Company Number: US-Accord-270920

PATIENT
  Sex: Female
  Weight: 63.50 kg

DRUGS (1)
  1. TACROLIMUS [Suspect]
     Active Substance: TACROLIMUS
     Indication: Eczema eyelids
     Dosage: ONLY USED IT ONE DAY

REACTIONS (2)
  - Product prescribing issue [Unknown]
  - Off label use [Unknown]
